FAERS Safety Report 21690851 (Version 1)
Quarter: 2022Q4

REPORT INFORMATION
  Report Type: Spontaneous
  Country: US (occurrence: US)
  Receive Date: 20221207
  Receipt Date: 20221207
  Transmission Date: 20230113
  Serious: Yes (Hospitalization, Other)
  Sender: FDA-Public Use
  Company Number: ENDG22-05743

PATIENT
  Sex: Male

DRUGS (4)
  1. FLUVOXAMINE MALEATE [Suspect]
     Active Substance: FLUVOXAMINE MALEATE
     Indication: Anxiety
     Dosage: UNK UNKNOWN, UNKNOWN
     Route: 065
     Dates: start: 2013
  2. FLUVOXAMINE MALEATE [Suspect]
     Active Substance: FLUVOXAMINE MALEATE
     Indication: Obsessive-compulsive disorder
  3. FLUVOXAMINE MALEATE [Suspect]
     Active Substance: FLUVOXAMINE MALEATE
     Indication: Panic disorder
  4. FLUVOXAMINE MALEATE [Suspect]
     Active Substance: FLUVOXAMINE MALEATE
     Indication: Agoraphobia

REACTIONS (22)
  - Arrhythmia [Not Recovered/Not Resolved]
  - Mental disorder [Unknown]
  - Postural orthostatic tachycardia syndrome [Unknown]
  - Nervous system disorder [Unknown]
  - Suicide attempt [Unknown]
  - Dyspnoea [Unknown]
  - Suicidal ideation [Unknown]
  - Memory impairment [Unknown]
  - Electric shock sensation [Unknown]
  - Anisocoria [Unknown]
  - Derealisation [Unknown]
  - Disturbance in attention [Unknown]
  - Adverse drug reaction [Unknown]
  - Blood urine [Unknown]
  - Photosensitivity reaction [Unknown]
  - Weight decreased [Unknown]
  - Crying [Unknown]
  - Agoraphobia [Unknown]
  - Disease recurrence [Unknown]
  - Dysarthria [Unknown]
  - Tremor [Unknown]
  - Product substitution issue [Unknown]

NARRATIVE: CASE EVENT DATE: 20130101
